FAERS Safety Report 5247598-1 (Version None)
Quarter: 2007Q1

REPORT INFORMATION
  Report Type: 
  Country: None (occurrence: None)
  Receive Date: 20070227
  Receipt Date: 20070223
  Transmission Date: 20070707
  Serious: Yes (Death)
  Sender: FDA-Public Use
  Company Number: JP-AVENTIS-200710495JP

PATIENT
  Age: 75 Year
  Sex: Male

DRUGS (2)
  1. AMARYL [Suspect]
     Route: 048
     Dates: start: 20061227, end: 20070218
  2. NU-LOTAN [Concomitant]

REACTIONS (1)
  - PLATELET COUNT DECREASED [None]
